FAERS Safety Report 23574706 (Version 1)
Quarter: 2024Q1

REPORT INFORMATION
  Report Type: Report from Study
  Country: US (occurrence: US)
  Receive Date: 20240228
  Receipt Date: 20240228
  Transmission Date: 20240409
  Serious: Yes (Hospitalization)
  Sender: FDA-Public Use
  Company Number: US-BIOVITRUM-2024-US-001547

PATIENT
  Age: 92 Year
  Sex: Female

DRUGS (1)
  1. KINERET [Suspect]
     Active Substance: ANAKINRA
     Indication: Rheumatoid arthritis
     Dosage: DAILY
     Route: 058
     Dates: start: 20201120

REACTIONS (5)
  - Pain [Unknown]
  - Product dose omission issue [Unknown]
  - Illness [Unknown]
  - Product distribution issue [Unknown]
  - Withdrawal syndrome [Unknown]
